FAERS Safety Report 6176695-1 (Version None)
Quarter: 2009Q2

REPORT INFORMATION
  Report Type: 
  Country: None (occurrence: None)
  Receive Date: 20090501
  Receipt Date: 20080310
  Transmission Date: 20091009
  Serious: Yes (Hospitalization)
  Sender: FDA-Public Use
  Company Number: US-ALEXION-A200700103

PATIENT

DRUGS (15)
  1. SOLIRIS [Suspect]
     Indication: PAROXYSMAL NOCTURNAL HAEMOGLOBINURIA
     Dosage: 600 MG, SINGLE
     Route: 042
     Dates: start: 20071009, end: 20071009
  2. SOLIRIS [Suspect]
     Dosage: 600 MG, SINGLE
     Route: 042
     Dates: start: 20071016, end: 20071016
  3. SOLIRIS [Suspect]
     Dosage: 600 MG, SINGLE
     Route: 042
     Dates: start: 20071023, end: 20071023
  4. SOLIRIS [Suspect]
     Dosage: 600 MG, SINGLE
     Route: 042
     Dates: start: 20071030, end: 20071030
  5. SOLIRIS [Suspect]
     Dosage: 900 MG, SINGLE
     Route: 042
     Dates: start: 20071106, end: 20071106
  6. SOLIRIS [Suspect]
     Dosage: 900 MG, SINGLE
     Route: 042
     Dates: start: 20071120, end: 20071120
  7. SOLIRIS [Suspect]
     Dosage: 900 MG, SINGLE
     Route: 042
     Dates: start: 20071204, end: 20071204
  8. SOLIRIS [Suspect]
     Dosage: 900 MG, SINGLE
     Route: 042
     Dates: start: 20071218, end: 20071218
  9. SOLIRIS [Suspect]
     Dosage: 900 MG, SINGLE
     Route: 042
     Dates: start: 20080103, end: 20080103
  10. SOLIRIS [Suspect]
     Dosage: 900 MG, SINGLE
     Route: 042
     Dates: start: 20080117, end: 20080117
  11. SOLIRIS [Suspect]
     Dosage: 900 MG, SINGLE
     Route: 042
     Dates: start: 20080214, end: 20080214
  12. SOLIRIS [Suspect]
     Dosage: 900 MG, SINGLE
     Route: 042
     Dates: start: 20080228, end: 20080228
  13. PREDNISONE [Concomitant]
     Indication: PAROXYSMAL NOCTURNAL HAEMOGLOBINURIA
     Dosage: 20 MG, QD
     Route: 048
  14. PRILOSEC [Concomitant]
     Dosage: UNK, QD
     Route: 048
  15. FOLIC ACID [Concomitant]
     Dosage: UNK, QD
     Route: 048

REACTIONS (6)
  - BLOOD URINE PRESENT [None]
  - HAEMOGLOBIN DECREASED [None]
  - HEADACHE [None]
  - HERPES ZOSTER [None]
  - PYREXIA [None]
  - VIRAL INFECTION [None]
